FAERS Safety Report 15504806 (Version 2)
Quarter: 2018Q4

REPORT INFORMATION
  Report Type: Spontaneous
  Country: US (occurrence: US)
  Receive Date: 20181016
  Receipt Date: 20181017
  Transmission Date: 20190205
  Serious: No
  Sender: FDA-Public Use
  Company Number: US-SA-2018SA266138

PATIENT
  Age: 64 Year
  Sex: Female

DRUGS (1)
  1. ICY HOT [Suspect]
     Active Substance: MENTHOL\METHYL SALICYLATE
     Indication: BACK PAIN
     Dosage: UNK UNK, UNK

REACTIONS (2)
  - Drug ineffective [Unknown]
  - Unevaluable event [Unknown]
